FAERS Safety Report 17816157 (Version 1)
Quarter: 2020Q2

REPORT INFORMATION
  Report Type: Report from Study
  Country: US (occurrence: US)
  Receive Date: 20200522
  Receipt Date: 20200522
  Transmission Date: 20200714
  Serious: Yes (Hospitalization)
  Sender: FDA-Public Use
  Company Number: US-ARBOR PHARMACEUTICALS, LLC-US-2020ARB000371

PATIENT
  Age: 47 Year
  Sex: Female
  Weight: 110.66 kg

DRUGS (3)
  1. DECADRON [Concomitant]
     Active Substance: DEXAMETHASONE
     Indication: PRODUCT USED FOR UNKNOWN INDICATION
     Dosage: 1-4 MG, VARIED FREQUENCY
     Route: 048
     Dates: start: 20200405, end: 20200419
  2. VIMPAT [Concomitant]
     Active Substance: LACOSAMIDE
     Indication: PRODUCT USED FOR UNKNOWN INDICATION
     Dosage: 200 MG, BID
     Route: 048
     Dates: start: 20200405
  3. CARMUSTINE. [Suspect]
     Active Substance: CARMUSTINE
     Indication: GLIOMA
     Dosage: 4 WAFERS, 7.7 MG EACH, 30.8 MG TOTAL
     Dates: start: 20200403, end: 20200507

REACTIONS (1)
  - Extradural abscess [Recovered/Resolved]

NARRATIVE: CASE EVENT DATE: 20200505
